FAERS Safety Report 5089750-4 (Version None)
Quarter: 2006Q3

REPORT INFORMATION
  Report Type: 
  Country: None (occurrence: None)
  Receive Date: 20060731
  Receipt Date: 20060320
  Transmission Date: 20061208
  Serious: Yes (Hospitalization)
  Sender: FDA-Public Use
  Company Number: US200603005207

PATIENT
  Age: 90 Year
  Sex: Female

DRUGS (2)
  1. FORTEO [Suspect]
     Indication: OSTEOPOROSIS
     Dates: start: 20041001
  2. FORTEO [Concomitant]

REACTIONS (3)
  - FALL [None]
  - PNEUMONIA [None]
  - SKIN LACERATION [None]
